FAERS Safety Report 24419317 (Version 2)
Quarter: 2024Q4

REPORT INFORMATION
  Report Type: Spontaneous
  Country: HU (occurrence: HU)
  Receive Date: 20241009
  Receipt Date: 20241018
  Transmission Date: 20250115
  Serious: No
  Sender: ROCHE
  Company Number: None

PATIENT
  Age: 77 Year
  Sex: Female
  Weight: 60.0 kg

DRUGS (1)
  1. ALTEPLASE [Suspect]
     Active Substance: ALTEPLASE
     Indication: Pulmonary embolism
     Dosage: ONE DOSAGE FORM PER ONE DAY; 10 MG IN 2 MINUTES, THEN 40 MG/HOUR INTRAVENOUS
     Route: 042
     Dates: start: 20231130, end: 20231130

REACTIONS (1)
  - Epistaxis [Recovered/Resolved]

NARRATIVE: CASE EVENT DATE: 20231130
